FAERS Safety Report 26107152 (Version 2)
Quarter: 2025Q4

REPORT INFORMATION
  Report Type: Spontaneous
  Country: US (occurrence: US)
  Receive Date: 20251201
  Receipt Date: 20251211
  Transmission Date: 20260118
  Serious: No
  Sender: CSL BEHRING
  Company Number: US-CSL-10550

PATIENT
  Age: 20 Year

DRUGS (1)
  1. HUMATE-P [Suspect]
     Active Substance: HUMAN COAGULATION FACTOR VIII/VON WILLEBRAND FACTOR COMPLEX
     Route: 065

REACTIONS (1)
  - Urticaria [Recovering/Resolving]
